FAERS Safety Report 4963859-5 (Version None)
Quarter: 2006Q1

REPORT INFORMATION
  Report Type: 
  Country: None (occurrence: None)
  Receive Date: 20060330
  Receipt Date: 20060310
  Transmission Date: 20060701
  Serious: Yes (Hospitalization)
  Sender: FDA-Public Use
  Company Number: JP200603002746

PATIENT
  Age: 56 Year
  Sex: Male

DRUGS (9)
  1. SOMATROPIN (SOMATROPIN) [Suspect]
     Indication: GROWTH HORMONE DEFICIENCY
     Dosage: 1.8 MG, OTHER, SUBCUTANEOUS
     Route: 058
     Dates: start: 20030514
  2. ENARMON DEPOT (TESTOSTERONE ENANTATE) INJECTION [Concomitant]
  3. THYRADIN S (LEVOTHYROXINE SODIUM) TABLET [Concomitant]
  4. CORTRIL (HYDROCORTISONE) TABLET [Concomitant]
  5. DEPAS (ETIZOLAM) TABLET [Concomitant]
  6. ADALAT CR /THA/ (NIFEDIPINE) TABLET [Concomitant]
  7. KELNAC (PLAUNOTOL) CAPSULE [Concomitant]
  8. GASTER (FAMOTIDINE) TABLET [Concomitant]
  9. BENZALIN (NITRAZEPAM) TABLET [Concomitant]

REACTIONS (1)
  - LOSS OF CONSCIOUSNESS [None]
